FAERS Safety Report 4928920-X (Version None)
Quarter: 2006Q1

REPORT INFORMATION
  Report Type: 
  Country: None (occurrence: None)
  Receive Date: 20060223
  Receipt Date: 20060210
  Transmission Date: 20060701
  Serious: Yes (Hospitalization, Other)
  Sender: FDA-Public Use
  Company Number: 2006020818

PATIENT
  Age: 62 Year
  Sex: Female
  Weight: 79.3795 kg

DRUGS (6)
  1. LIPITOR [Suspect]
     Indication: BLOOD CHOLESTEROL INCREASED
     Dosage: 40 MG (40 MG, 1 IN 1 D)
     Dates: end: 20050901
  2. NEXIUM [Suspect]
     Indication: ILL-DEFINED DISORDER
  3. COUMADIN [Concomitant]
  4. PAXIL [Concomitant]
  5. TRICOR [Concomitant]
  6. RYTHMOL [Concomitant]

REACTIONS (10)
  - ASTHENIA [None]
  - BLOOD CHOLESTEROL INCREASED [None]
  - CARDIAC ARREST [None]
  - COMA [None]
  - CONDITION AGGRAVATED [None]
  - EXTRASYSTOLES [None]
  - HEART RATE INCREASED [None]
  - HEART RATE IRREGULAR [None]
  - INFECTION [None]
  - PANCREATITIS [None]
